FAERS Safety Report 22531774 (Version 1)
Quarter: 2023Q2

REPORT INFORMATION
  Report Type: Spontaneous
  Country: US (occurrence: US)
  Receive Date: 20230607
  Receipt Date: 20230607
  Transmission Date: 20230722
  Serious: Yes (Hospitalization)
  Sender: FDA-Public Use
  Company Number: US-Blueprint Medicines Corporation-SP-US-2023-000891

PATIENT
  Sex: Female

DRUGS (2)
  1. AYVAKIT [Suspect]
     Active Substance: AVAPRITINIB
     Indication: Systemic mastocytosis
     Dosage: WITH 50 MG FOR 150 MG DAILY
     Route: 048
     Dates: start: 20230115
  2. AYVAKIT [Suspect]
     Active Substance: AVAPRITINIB
     Dosage: WITH 100 MG FOR 150 MG DAILY
     Route: 048
     Dates: start: 20230115

REACTIONS (1)
  - Platelet count decreased [Not Recovered/Not Resolved]
